FAERS Safety Report 15369925 (Version 1)
Quarter: 2018Q3

REPORT INFORMATION
  Report Type: Spontaneous
  Country: FR (occurrence: FR)
  Receive Date: 20180911
  Receipt Date: 20180911
  Transmission Date: 20181010
  Serious: Yes (Life-Threatening, Hospitalization, Other)
  Sender: FDA-Public Use
  Company Number: FR-009507513-2011SP015320

PATIENT
  Age: 85 Year
  Sex: Male
  Weight: 76.5 kg

DRUGS (11)
  1. ORGARAN [Interacting]
     Active Substance: DANAPAROID SODIUM
     Dosage: 2000 IU, BID
     Route: 058
     Dates: start: 20100225, end: 20110301
  2. SINTROM [Interacting]
     Active Substance: ACENOCOUMAROL
     Indication: ANTICOAGULANT THERAPY
     Dosage: 2 MG, QD
     Route: 048
     Dates: end: 20110301
  3. FORLAX [Concomitant]
     Active Substance: POLYETHYLENE GLYCOL 4000
     Indication: THERAPEUTIC PROCEDURE
     Dosage: 20 MG, QD
  4. AVODART [Concomitant]
     Active Substance: DUTASTERIDE
     Indication: THERAPEUTIC PROCEDURE
     Dosage: 0.5 MG, QAM
     Route: 065
  5. VESICARE [Concomitant]
     Active Substance: SOLIFENACIN SUCCINATE
     Indication: THERAPEUTIC PROCEDURE
     Dosage: 5 MG, QD
  6. IXPRIM [Concomitant]
     Active Substance: ACETAMINOPHEN\TRAMADOL HYDROCHLORIDE
     Indication: PAIN
     Dosage: 1 DF, QID
     Route: 065
  7. DOLIPRANE [Concomitant]
     Active Substance: ACETAMINOPHEN
     Indication: THERAPEUTIC PROCEDURE
     Dosage: 500 MG, QID
  8. ORGARAN [Interacting]
     Active Substance: DANAPAROID SODIUM
     Dosage: UNK
     Dates: start: 20110304
  9. ORGARAN [Suspect]
     Active Substance: DANAPAROID SODIUM
     Indication: ANTICOAGULANT THERAPY
     Dosage: UNK
     Route: 058
  10. ZOCOR [Concomitant]
     Active Substance: SIMVASTATIN
     Indication: THERAPEUTIC PROCEDURE
     Dosage: 20 MG, QPM
     Route: 065
  11. TAREG [Concomitant]
     Active Substance: VALSARTAN
     Indication: THERAPEUTIC PROCEDURE
     Dosage: CO TAREG 160/12.5

REACTIONS (6)
  - Hyperkalaemia [Recovered/Resolved]
  - Monoplegia [Recovered/Resolved with Sequelae]
  - Anaemia [Recovered/Resolved]
  - Drug interaction [Unknown]
  - Acute kidney injury [Recovered/Resolved]
  - Abdominal wall haematoma [Recovered/Resolved]

NARRATIVE: CASE EVENT DATE: 201103
